FAERS Safety Report 22351838 (Version 5)
Quarter: 2023Q4

REPORT INFORMATION
  Report Type: Report from Study
  Country: AU (occurrence: AU)
  Receive Date: 20230522
  Receipt Date: 20231116
  Transmission Date: 20240109
  Serious: Yes (Other)
  Sender: FDA-Public Use
  Company Number: AU-002147023-NVSC2023AU026876

PATIENT
  Sex: Female

DRUGS (1)
  1. COSENTYX [Suspect]
     Active Substance: SECUKINUMAB
     Indication: Psoriasis
     Dosage: 300 MG, QMO
     Route: 058
     Dates: start: 20221118

REACTIONS (5)
  - Capillary fragility [Unknown]
  - White blood cell count decreased [Unknown]
  - Nasal congestion [Unknown]
  - Pain in extremity [Unknown]
  - Injection site bruising [Unknown]
